FAERS Safety Report 5897620-4 (Version None)
Quarter: 2008Q3

REPORT INFORMATION
  Report Type: 
  Country: None (occurrence: None)
  Receive Date: 20080923
  Receipt Date: 20080909
  Transmission Date: 20090109
  Serious: Yes (Hospitalization, Other)
  Sender: FDA-Public Use
  Company Number: AZADE200800313

PATIENT
  Age: 45 Year
  Sex: Male
  Weight: 77 kg

DRUGS (13)
  1. VIDAZA [Suspect]
     Indication: MYELODYSPLASTIC SYNDROME
     Dosage: (75 MG/M2), INTRAVENOUS
     Route: 042
     Dates: start: 20080626, end: 20080707
  2. VIDAZA [Suspect]
     Indication: MYELODYSPLASTIC SYNDROME
     Dosage: (75 MG/M2), INTRAVENOUS
     Route: 042
     Dates: start: 20080729, end: 20080804
  3. VIDAZA [Suspect]
     Indication: MYELODYSPLASTIC SYNDROME
     Dosage: (75 MG/M2), INTRAVENOUS
     Route: 042
     Dates: start: 20080902, end: 20080908
  4. VANCOMYCIN [Concomitant]
  5. ELECTROLYTES (ELECTROLYTE SOLUTIONS) [Concomitant]
  6. ONDANSETRON HCL [Concomitant]
  7. CEFTAZIDIM (CEFTAZIDIME) [Concomitant]
  8. PANTOPRAZOLE SODIUM [Concomitant]
  9. ACYCLOVIR [Concomitant]
  10. PANCREATIN TRIPLE STRENGTH CAP [Concomitant]
  11. BACTRIM [Concomitant]
  12. ALLOPURINOL [Concomitant]
  13. HEPARIN [Concomitant]

REACTIONS (8)
  - BITE [None]
  - DYSPHAGIA [None]
  - HYPERSENSITIVITY [None]
  - NEUTROPHIL COUNT DECREASED [None]
  - SEPSIS [None]
  - SOFT TISSUE INFECTION [None]
  - SWOLLEN TONGUE [None]
  - WHITE BLOOD CELL COUNT DECREASED [None]
